FAERS Safety Report 8300497 (Version 3)
Quarter: 2013Q4

REPORT INFORMATION
  Report Type: Report from Study
  Country: DE (occurrence: DE)
  Receive Date: 20111219
  Receipt Date: 20131123
  Transmission Date: 20140711
  Serious: Yes (Hospitalization)
  Sender: FDA-Public Use
  Company Number: PHHO2011DE020864

PATIENT
  Sex: 0

DRUGS (3)
  1. INC424 [Suspect]
     Indication: MYELOFIBROSIS
     Dosage: 20 MG, BID
     Route: 048
     Dates: start: 20111026
  2. ACETYLSALICYLIC ACID [Suspect]
     Indication: PAIN
     Dosage: 100 G, QD
     Route: 048
     Dates: start: 20110920, end: 20111209
  3. NADROPARIN [Suspect]
     Indication: THROMBOSIS PROPHYLAXIS
     Dosage: 60 MG, QD
     Route: 058
     Dates: start: 20111005, end: 20111209

REACTIONS (2)
  - Epistaxis [Recovered/Resolved]
  - Postmenopausal haemorrhage [Recovered/Resolved]
